FAERS Safety Report 18643084 (Version 3)
Quarter: 2021Q1

REPORT INFORMATION
  Report Type: Spontaneous
  Country: US (occurrence: US)
  Receive Date: 20201221
  Receipt Date: 20210201
  Transmission Date: 20210419
  Serious: No
  Sender: FDA-Public Use
  Company Number: US-JNJFOC-20201227704

PATIENT
  Age: 72 Year
  Sex: Male
  Weight: 104.69 kg

DRUGS (4)
  1. SIMPONI ARIA [Suspect]
     Active Substance: GOLIMUMAB
     Indication: RHEUMATOID ARTHRITIS
     Route: 041
     Dates: start: 20190624, end: 20201214
  2. SIMPONI ARIA [Suspect]
     Active Substance: GOLIMUMAB
     Route: 041
  3. SIMPONI ARIA [Suspect]
     Active Substance: GOLIMUMAB
     Route: 041
  4. SIMPONI ARIA [Suspect]
     Active Substance: GOLIMUMAB
     Route: 041

REACTIONS (1)
  - Product administration error [Unknown]

NARRATIVE: CASE EVENT DATE: 20201214
